FAERS Safety Report 5162371-0 (Version None)
Quarter: 2006Q4

REPORT INFORMATION
  Report Type: 
  Country: None (occurrence: None)
  Receive Date: 20061127
  Receipt Date: 20061127
  Transmission Date: 20070319
  Serious: Yes (Other)
  Sender: FDA-Public Use
  Company Number: None

PATIENT
  Sex: Female
  Weight: 65.4 kg

DRUGS (4)
  1. TEMODAR [Suspect]
     Dosage: 75 MG/M2 PO
     Route: 048
     Dates: start: 20061027
  2. DECADRON [Concomitant]
  3. DILANTIN [Concomitant]
  4. PHENOBARBITAL TAB [Concomitant]

REACTIONS (6)
  - DEHYDRATION [None]
  - DRUG LEVEL INCREASED [None]
  - MUSCULAR WEAKNESS [None]
  - NAUSEA [None]
  - NEOPLASM PROGRESSION [None]
  - VOMITING [None]
